FAERS Safety Report 20861608 (Version 4)
Quarter: 2022Q4

REPORT INFORMATION
  Report Type: Spontaneous
  Country: FR (occurrence: FR)
  Receive Date: 20220523
  Receipt Date: 20221123
  Transmission Date: 20230112
  Serious: Yes (Disabling, Other)
  Sender: FDA-Public Use
  Company Number: FR-ALXN-A202205965

PATIENT
  Sex: Female

DRUGS (1)
  1. SOLIRIS [Suspect]
     Active Substance: ECULIZUMAB
     Indication: Neuromyelitis optica spectrum disorder
     Dosage: 1200 MG, UNK
     Route: 065
     Dates: start: 202104

REACTIONS (5)
  - Neuromyelitis optica spectrum disorder [Not Recovered/Not Resolved]
  - Blindness unilateral [Unknown]
  - Quadriplegia [Unknown]
  - Rebound effect [Unknown]
  - Product dose omission issue [Unknown]
